FAERS Safety Report 21312342 (Version 1)
Quarter: 2022Q3

REPORT INFORMATION
  Report Type: Spontaneous
  Country: US (occurrence: None)
  Receive Date: 20220909
  Receipt Date: 20220909
  Transmission Date: 20221026
  Serious: No
  Sender: FDA-Public Use
  Company Number: US-ARIS GLOBAL-202205-0974

PATIENT
  Age: 68 Year
  Sex: Female

DRUGS (10)
  1. OXERVATE [Suspect]
     Active Substance: CENEGERMIN-BKBJ
     Indication: Neurotrophic keratopathy
     Route: 047
     Dates: start: 20220518
  2. GINKGO [Concomitant]
     Active Substance: GINKGO
  3. DICYCLOMINE HYDROCHLORIDE [Concomitant]
     Active Substance: DICYCLOMINE HYDROCHLORIDE
  4. LEVOTHYROXINE SODIUM [Concomitant]
     Active Substance: LEVOTHYROXINE SODIUM
  5. LOTEMAX [Concomitant]
     Active Substance: LOTEPREDNOL ETABONATE
     Dosage: DROPS SUSPENSION
  6. BUTALBITAL-ACETAMINOPHEN-CAFFE [Concomitant]
  7. BETAMETHASONE DIPROPIONATE AUGMENTED [Concomitant]
     Active Substance: BETAMETHASONE DIPROPIONATE
  8. FML FORTE [Concomitant]
     Active Substance: FLUOROMETHOLONE
     Dosage: DROPS SUSPENSION
  9. FLUOROMETHOLONE [Concomitant]
     Active Substance: FLUOROMETHOLONE
     Dosage: DROPS SUSPENSION
  10. RESTASIS [Concomitant]
     Active Substance: CYCLOSPORINE

REACTIONS (8)
  - Headache [Unknown]
  - Swelling of eyelid [Unknown]
  - Ocular hyperaemia [Unknown]
  - Asthenopia [Unknown]
  - Skin discomfort [Recovered/Resolved]
  - Fatigue [Not Recovered/Not Resolved]
  - Dry eye [Not Recovered/Not Resolved]
  - Eye irritation [Not Recovered/Not Resolved]
